FAERS Safety Report 7473335-6 (Version None)
Quarter: 2011Q2

REPORT INFORMATION
  Report Type: 
  Country: None (occurrence: None)
  Receive Date: 20110503
  Receipt Date: 20110428
  Transmission Date: 20111010
  Serious: Yes (Other)
  Sender: FDA-Public Use
  Company Number: 20110359

PATIENT
  Age: 27 Year
  Sex: Female

DRUGS (1)
  1. LIDOCAINE HCL [Suspect]
     Indication: PERIODONTITIS
     Dosage: 1.8 ML

REACTIONS (1)
  - BLINDNESS UNILATERAL [None]
